FAERS Safety Report 9257439 (Version 1)
Quarter: 2013Q1

REPORT INFORMATION
  Report Type: Spontaneous
  Country: US (occurrence: None)
  Receive Date: 20121212
  Receipt Date: 20121212
  Transmission Date: 20140127
  Serious: No
  Sender: FDA-Public Use
  Company Number: 1207USA000263

PATIENT
  Age: 58 Year
  Sex: Male
  Weight: 108.8 kg

DRUGS (2)
  1. VICTRELIS (BOCEPREVIR) CAPSULE, 200 MG [Suspect]
     Indication: HEPATITIS C
     Route: 048
     Dates: start: 201111
  2. CYCLOBENZAPRINE HYDROCHLORIDE ( CYCLOBENZAPRINE HYDROCHLORIDE) [Concomitant]

REACTIONS (2)
  - Therapeutic product ineffective [None]
  - Anaemia [None]
